FAERS Safety Report 23469070 (Version 1)
Quarter: 2024Q1

REPORT INFORMATION
  Report Type: Spontaneous
  Country: US (occurrence: None)
  Receive Date: 20240201
  Receipt Date: 20240201
  Transmission Date: 20240410
  Serious: Yes (Hospitalization)
  Sender: FDA-Public Use
  Company Number: None

PATIENT
  Age: 13 Year
  Sex: Male
  Weight: 55.5 kg

DRUGS (5)
  1. RYLAZE [Suspect]
     Active Substance: ASPARAGINASE ERWINIA CHRYSANTHEMI (RECOMBINANT)-RYWN
     Indication: Precursor T-lymphoblastic lymphoma/leukaemia
     Dosage: OTHER FREQUENCY : QMWF X6 DOSES;?
     Route: 030
     Dates: start: 20240112, end: 20240124
  2. METHOTREXATE SODIUM [Concomitant]
     Active Substance: METHOTREXATE SODIUM
     Dates: start: 20231229, end: 20240119
  3. CYCLOPHOSPHAMIDE [Concomitant]
     Active Substance: CYCLOPHOSPHAMIDE
     Dates: start: 20231229, end: 20231229
  4. CYTARABINE [Concomitant]
     Active Substance: CYTARABINE
     Dates: start: 20231229, end: 20240111
  5. MERCAPTOPURINE [Concomitant]
     Active Substance: MERCAPTOPURINE
     Dates: start: 20231229, end: 20240111

REACTIONS (4)
  - Superior sagittal sinus thrombosis [None]
  - Therapy cessation [None]
  - Cerebral disorder [None]
  - Headache [None]

NARRATIVE: CASE EVENT DATE: 20240125
